FAERS Safety Report 8408199-7 (Version None)
Quarter: 2012Q2

REPORT INFORMATION
  Report Type: 
  Country: None (occurrence: None)
  Receive Date: 20120531
  Receipt Date: 20120531
  Transmission Date: 20120825
  Serious: No
  Sender: FDA-Public Use
  Company Number: None

PATIENT
  Age: 46 Year
  Sex: Male
  Weight: 117.028 kg

DRUGS (1)
  1. FEXOFENADINE [Suspect]
     Indication: HYPERSENSITIVITY
     Dosage: 180MG DAILY PO
     Route: 048
     Dates: start: 20120418, end: 20120525

REACTIONS (1)
  - DRUG INEFFECTIVE [None]
